FAERS Safety Report 15912815 (Version 1)
Quarter: 2019Q1

REPORT INFORMATION
  Report Type: Spontaneous
  Country: US (occurrence: US)
  Receive Date: 20190204
  Receipt Date: 20190204
  Transmission Date: 20190417
  Serious: No
  Sender: FDA-Public Use
  Company Number: US-ABBVIE-18K-163-2455557-00

PATIENT
  Age: 39 Year
  Sex: Female
  Weight: 114.41 kg

DRUGS (11)
  1. HUMIRA [Suspect]
     Active Substance: ADALIMUMAB
     Indication: RHEUMATOID ARTHRITIS
     Route: 058
     Dates: start: 201803
  2. XYLON (NON-ABBVIE) [Concomitant]
     Indication: HYPERSENSITIVITY
  3. METFORMIN (NON-ABBVIE) [Concomitant]
     Indication: DIABETES MELLITUS
  4. DEXILANT (NON-ABBVIE) [Concomitant]
     Indication: GASTROOESOPHAGEAL REFLUX DISEASE
  5. FLONASE (NON-ABBVIE) [Concomitant]
     Indication: HYPERSENSITIVITY
  6. CRESTOR (NON-ABBVIE) [Concomitant]
     Indication: BLOOD CHOLESTEROL INCREASED
  7. LEFLUNOMIDE (NON-ABBVIE) [Concomitant]
     Indication: ARTHRITIS
  8. CONCERTA (NON-ABBVIE) [Concomitant]
     Indication: ATTENTION DEFICIT/HYPERACTIVITY DISORDER
  9. LISINOPRIL (NON-ABBVIE) [Concomitant]
     Indication: HYPERTENSION
  10. METFORMIN (NON-ABBVIE) [Concomitant]
     Indication: POLYCYSTIC OVARIES
  11. ZOLOFT (NON-ABBVIE) [Concomitant]
     Indication: ANXIETY

REACTIONS (5)
  - Injection site discharge [Not Recovered/Not Resolved]
  - Injection site reaction [Not Recovered/Not Resolved]
  - Incorrect dose administered [Unknown]
  - Device issue [Unknown]
  - Needle issue [Unknown]

NARRATIVE: CASE EVENT DATE: 20180810
